FAERS Safety Report 4989886-X (Version None)
Quarter: 2006Q2

REPORT INFORMATION
  Report Type: 
  Country: None (occurrence: None)
  Receive Date: 20060503
  Receipt Date: 20060427
  Transmission Date: 20061013
  Serious: Yes (Hospitalization)
  Sender: FDA-Public Use
  Company Number: GB-SOLVAY-00306001416

PATIENT
  Age: 35 Year
  Sex: Male

DRUGS (3)
  1. MESALAZINE [Suspect]
     Indication: COLITIS ULCERATIVE
     Dosage: DAILY DOSE:  UNKNOWN
     Route: 065
  2. PREDNISOLONE [Suspect]
     Indication: COLITIS ULCERATIVE
     Dosage: DAILY DOSE:  UNKNOWN
     Route: 048
  3. LOW MOLECULAR WEIGHT HEPARIN [Suspect]
     Indication: COLITIS ULCERATIVE
     Dosage: DAILY DOSE:  UNKNOWN
     Route: 065

REACTIONS (1)
  - INTESTINAL INFARCTION [None]
